FAERS Safety Report 5261495-7 (Version None)
Quarter: 2007Q1

REPORT INFORMATION
  Report Type: 
  Country: None (occurrence: None)
  Receive Date: 20070307
  Receipt Date: 20070220
  Transmission Date: 20070707
  Serious: Yes (Other)
  Sender: FDA-Public Use
  Company Number: 2006BI014213

PATIENT
  Age: 60 Year
  Sex: Female

DRUGS (5)
  1. AVONEX [Suspect]
     Indication: MULTIPLE SCLEROSIS
     Dosage: 30 UG;QW;IM
     Route: 030
     Dates: start: 20060921
  2. AVONEX [Suspect]
     Indication: MULTIPLE SCLEROSIS
     Dosage: 15 UG;QW;IM
     Route: 030
  3. AVONEX [Suspect]
     Indication: MULTIPLE SCLEROSIS
     Dosage: 37.5 UG;QW;IM
     Route: 030
  4. ASPIRIN [Concomitant]
  5. NITROGLYCERIN [Concomitant]

REACTIONS (7)
  - CHILLS [None]
  - DIZZINESS [None]
  - FALL [None]
  - HEADACHE [None]
  - MEMORY IMPAIRMENT [None]
  - SYNCOPE [None]
  - URINARY INCONTINENCE [None]
